FAERS Safety Report 10466700 (Version 1)
Quarter: 2014Q3

REPORT INFORMATION
  Report Type: Spontaneous
  Country: DE (occurrence: None)
  Receive Date: 20140918
  Receipt Date: 20140918
  Transmission Date: 20150326
  Serious: Yes (Congenital Anomaly)
  Sender: FDA-Public Use
  Company Number: 2539535

PATIENT

DRUGS (14)
  1. AZTREONAM. [Suspect]
     Active Substance: AZTREONAM
     Route: 064
  2. COLISTIN [Suspect]
     Active Substance: COLISTIN
     Route: 064
  3. SALBUTAMOL [Suspect]
     Active Substance: ALBUTEROL
     Route: 064
  4. FENOTEROL [Suspect]
     Active Substance: FENOTEROL
     Route: 064
  5. PANCREATIN [Suspect]
     Active Substance: PANCRELIPASE
     Route: 064
  6. INSULIN [Suspect]
     Active Substance: INSULIN NOS
     Route: 064
  7. CEFTAZIDIME. [Suspect]
     Active Substance: CEFTAZIDIME
     Route: 064
  8. LEVOFLOXACIN [Suspect]
     Active Substance: LEVOFLOXACIN
     Route: 064
  9. CIPROFLOXACIN. [Suspect]
     Active Substance: CIPROFLOXACIN
     Route: 064
  10. AZITHROMYCIN [Suspect]
     Active Substance: AZITHROMYCIN ANHYDROUS
     Route: 064
  11. IVACAFTOR [Suspect]
     Active Substance: IVACAFTOR
     Route: 064
  12. VITAMIN K [Suspect]
     Active Substance: PHYTONADIONE
     Route: 064
  13. MEROPENEM. [Suspect]
     Active Substance: MEROPENEM
     Route: 064
  14. IPRATROPIUM [Suspect]
     Active Substance: IPRATROPIUM
     Route: 064

REACTIONS (3)
  - Atrial septal defect [None]
  - Premature baby [None]
  - Maternal drugs affecting foetus [None]
